FAERS Safety Report 15896403 (Version 3)
Quarter: 2019Q1

REPORT INFORMATION
  Report Type: Spontaneous
  Country: US (occurrence: US)
  Receive Date: 20190131
  Receipt Date: 20190308
  Transmission Date: 20190417
  Serious: Yes (Other)
  Sender: FDA-Public Use
  Company Number: PHEH2019US004348

PATIENT
  Age: 55 Year
  Sex: Female

DRUGS (4)
  1. TIMOLOL. [Suspect]
     Active Substance: TIMOLOL
     Indication: GLAUCOMA
     Route: 047
  2. BRIMONIDINE TARTRATE (ALC) [Suspect]
     Active Substance: BRIMONIDINE TARTRATE
     Indication: GLAUCOMA
     Route: 047
  3. BRIMONIDINE TARTRATE (ALC) [Suspect]
     Active Substance: BRIMONIDINE TARTRATE
     Dosage: 1 GTT, BID
     Route: 047
     Dates: start: 20190111
  4. TIMOLOL. [Suspect]
     Active Substance: TIMOLOL
     Dosage: 1 GTT, BID
     Route: 047
     Dates: start: 20190111

REACTIONS (3)
  - Cataract [Unknown]
  - Intraocular pressure increased [Unknown]
  - Macular degeneration [Unknown]

NARRATIVE: CASE EVENT DATE: 20190111
